FAERS Safety Report 9364995 (Version 1)
Quarter: 2013Q2

REPORT INFORMATION
  Report Type: Spontaneous
  Country: US (occurrence: US)
  Receive Date: 20130624
  Receipt Date: 20130624
  Transmission Date: 20140414
  Serious: Yes (Other)
  Sender: FDA-Public Use
  Company Number: US-PFIZER INC-2013186628

PATIENT
  Age: 73 Year
  Sex: Male
  Weight: 91.61 kg

DRUGS (4)
  1. LYRICA [Suspect]
     Indication: NEUROPATHY PERIPHERAL
     Dosage: 50 MG, 3X/DAY
     Route: 048
     Dates: start: 20130401
  2. CYMBALTA [Suspect]
     Indication: NEUROPATHY PERIPHERAL
     Dosage: 30 MG IN THE MORNING AND 60 MG AT NIGHT
     Dates: start: 201304
  3. CARVEDILOL [Concomitant]
     Indication: BLOOD PRESSURE ABNORMAL
     Dosage: 3.125 MG, 2X/DAY (HALF TABLET OF 6.25 MG)
  4. ATORVASTATIN [Concomitant]
     Indication: BLOOD CHOLESTEROL ABNORMAL
     Dosage: 5 MG DAILY

REACTIONS (5)
  - Off label use [Not Recovered/Not Resolved]
  - Weight increased [Unknown]
  - Dry mouth [Unknown]
  - Dry eye [Unknown]
  - Dental caries [Unknown]
